FAERS Safety Report 6214447-4 (Version None)
Quarter: 2009Q2

REPORT INFORMATION
  Report Type: 
  Country: None (occurrence: None)
  Receive Date: 20090602
  Receipt Date: 20090521
  Transmission Date: 20091009
  Serious: Yes (Other)
  Sender: FDA-Public Use
  Company Number: TCI2009A01540

PATIENT
  Age: 67 Year
  Sex: Female

DRUGS (3)
  1. LANSOPRAZOLE [Suspect]
     Indication: GASTRIC ULCER
     Dosage: PER ORAL
     Route: 048
  2. LOXOPROFEN SODIUM [Suspect]
     Dosage: PER ORAL
     Route: 048
     Dates: end: 20080919
  3. DICLOFENAC SODIUM [Suspect]
     Dosage: PER RECTAL
     Route: 054
     Dates: end: 20080919

REACTIONS (3)
  - COLITIS COLLAGENOUS [None]
  - DIARRHOEA [None]
  - LARGE INTESTINAL ULCER [None]
